FAERS Safety Report 7200358-4 (Version None)
Quarter: 2010Q4

REPORT INFORMATION
  Report Type: 
  Country: None (occurrence: None)
  Receive Date: 20101228
  Receipt Date: 20101221
  Transmission Date: 20110411
  Serious: Yes (Death)
  Sender: FDA-Public Use
  Company Number: US-BRISTOL-MYERS SQUIBB COMPANY-15316664

PATIENT
  Age: 42 Year
  Sex: Male

DRUGS (7)
  1. ATAZANAVIR [Suspect]
  2. RITONAVIR [Suspect]
  3. FOSAMPRENAVIR CALCIUM [Suspect]
  4. EMTRICITABINE [Suspect]
  5. TENOFOVIR DISOPROXIL FUMARATE [Suspect]
  6. ADEFOVIR DIPIVOXIL KIT [Suspect]
  7. TELBIVUDINE [Suspect]

REACTIONS (1)
  - ACUTE HEPATIC FAILURE [None]
